FAERS Safety Report 12970712 (Version 1)
Quarter: 2016Q4

REPORT INFORMATION
  Report Type: Spontaneous
  Country: US (occurrence: US)
  Receive Date: 20161123
  Receipt Date: 20161123
  Transmission Date: 20170207
  Serious: No
  Sender: FDA-Public Use
  Company Number: US-ELI_LILLY_AND_COMPANY-US201611000738

PATIENT
  Sex: Female

DRUGS (9)
  1. OXYBUTYNIN [Concomitant]
     Active Substance: OXYBUTYNIN
     Dosage: UNK, UNKNOWN
     Route: 065
  2. STRATTERA [Suspect]
     Active Substance: ATOMOXETINE HYDROCHLORIDE
     Indication: ATTENTION DEFICIT/HYPERACTIVITY DISORDER
     Dosage: UNK UNK, UNKNOWN
     Route: 065
     Dates: start: 201607
  3. ENALAPRIL [Concomitant]
     Active Substance: ENALAPRIL
     Dosage: UNK, UNKNOWN
     Route: 065
  4. ATORVASTATIN [Concomitant]
     Active Substance: ATORVASTATIN
     Dosage: UNK, UNKNOWN
     Route: 065
  5. NAPROXEN. [Concomitant]
     Active Substance: NAPROXEN
     Dosage: UNK, UNKNOWN
     Route: 065
  6. STRATTERA [Suspect]
     Active Substance: ATOMOXETINE HYDROCHLORIDE
     Dosage: 60 MG, UNKNOWN
     Route: 065
     Dates: end: 201608
  7. ALPRAZOLAM. [Concomitant]
     Active Substance: ALPRAZOLAM
     Dosage: UNK, UNKNOWN
     Route: 065
  8. FLUOXETINE [Concomitant]
     Active Substance: FLUOXETINE HYDROCHLORIDE
     Dosage: UNK, UNKNOWN
     Route: 065
  9. TRAMADOL. [Concomitant]
     Active Substance: TRAMADOL
     Dosage: UNK, UNKNOWN
     Route: 065

REACTIONS (4)
  - Ligament sprain [Recovered/Resolved]
  - Hostility [Recovered/Resolved]
  - Gait disturbance [Unknown]
  - Joint dislocation [Recovering/Resolving]
